FAERS Safety Report 13332387 (Version 3)
Quarter: 2022Q1

REPORT INFORMATION
  Report Type: Spontaneous
  Country: IT (occurrence: IT)
  Receive Date: 20170314
  Receipt Date: 20220110
  Transmission Date: 20220423
  Serious: Yes (Hospitalization)
  Sender: FDA-Public Use
  Company Number: IT-AUROBINDO-AUR-APL-2017-30655

PATIENT
  Age: 52 Year
  Sex: Female
  Weight: 70 kg

DRUGS (3)
  1. CITALOPRAM HYDROBROMIDE [Suspect]
     Active Substance: CITALOPRAM HYDROBROMIDE
     Indication: Drug abuse
     Dosage: 400 MILLIGRAM, 1 TOTAL (400 MG, ONCE/SINGLE)
     Route: 048
     Dates: start: 20160928, end: 20160928
  2. CITALOPRAM HYDROBROMIDE [Suspect]
     Active Substance: CITALOPRAM HYDROBROMIDE
     Indication: Depression
  3. DISULFIRAM [Concomitant]
     Active Substance: DISULFIRAM
     Indication: Alcoholism
     Dosage: UNK
     Route: 048

REACTIONS (3)
  - Poisoning [Recovering/Resolving]
  - Intentional product misuse [Recovering/Resolving]
  - Intentional self-injury [Recovering/Resolving]

NARRATIVE: CASE EVENT DATE: 20160928
